FAERS Safety Report 18861767 (Version 2)
Quarter: 2021Q1

REPORT INFORMATION
  Report Type: Spontaneous
  Country: CZ (occurrence: CZ)
  Receive Date: 20210208
  Receipt Date: 20210217
  Transmission Date: 20210420
  Serious: Yes (Other)
  Sender: FDA-Public Use
  Company Number: NVSC2021CZ029126

PATIENT
  Sex: Male

DRUGS (5)
  1. RITUXIMAB. [Suspect]
     Active Substance: RITUXIMAB
     Indication: HAEMOPHILIA A WITH ANTI FACTOR VIII
     Dosage: UNK
     Route: 065
     Dates: start: 2018
  2. FACTOR VIII (ANTIHAEMOPHILIC FACTOR) [Suspect]
     Active Substance: ANTIHEMOPHILIC FACTOR HUMAN
     Indication: HAEMOPHILIA A WITH ANTI FACTOR VIII
     Dosage: UNK
     Route: 065
     Dates: start: 2018
  3. FACTOR VIIA, RECOMBINANT [Concomitant]
     Active Substance: COAGULATION FACTOR VIIA RECOMBINANT HUMAN
     Indication: HAEMOPHILIA A WITH ANTI FACTOR VIII
     Dosage: 200 UG/KG, QW (100 MICROGRAM/KILOGRAM, TWICE WEEKLY ON LONG?TERM BASIS)
     Route: 065
     Dates: start: 2015
  4. EMICIZUMAB. [Suspect]
     Active Substance: EMICIZUMAB
     Indication: HAEMOPHILIA A WITH ANTI FACTOR VIII
     Dosage: 1.5 MG/KG, QW
     Route: 065
     Dates: start: 20190403
  5. MYCOPHENOLATE MOFETIL. [Suspect]
     Active Substance: MYCOPHENOLATE MOFETIL
     Indication: HAEMOPHILIA A WITH ANTI FACTOR VIII
     Dosage: UNK
     Route: 065
     Dates: start: 2018

REACTIONS (6)
  - Haemorrhage [Recovering/Resolving]
  - Eyelid oedema [Recovering/Resolving]
  - Eyelid bleeding [Recovered/Resolved]
  - Off label use [Unknown]
  - Haemarthrosis [Recovered/Resolved]
  - Treatment failure [Unknown]
